FAERS Safety Report 10280062 (Version 1)
Quarter: 2014Q3

REPORT INFORMATION
  Report Type: Spontaneous
  Country: US (occurrence: None)
  Receive Date: 20140701
  Receipt Date: 20140701
  Transmission Date: 20150326
  Serious: No
  Sender: FDA-Public Use
  Company Number: None

PATIENT
  Age: 28 Year
  Sex: Female
  Weight: 77.57 kg

DRUGS (1)
  1. SMZ/TMZ DS 800-160 [Suspect]
     Active Substance: SULFAMETHOXAZOLE\TRIMETHOPRIM
     Indication: URINARY TRACT INFECTION
     Dosage: 1  TWICE DAILY  TAKEN BY MOUTH
     Route: 048

REACTIONS (9)
  - No reaction on previous exposure to drug [None]
  - Fatigue [None]
  - Tremor [None]
  - Dysgeusia [None]
  - Depressed mood [None]
  - Paraesthesia [None]
  - Malaise [None]
  - Hypoaesthesia [None]
  - Decreased appetite [None]

NARRATIVE: CASE EVENT DATE: 20140624
